FAERS Safety Report 21694692 (Version 1)
Quarter: 2022Q4

REPORT INFORMATION
  Report Type: Spontaneous
  Country: US (occurrence: None)
  Receive Date: 20221207
  Receipt Date: 20221207
  Transmission Date: 20230112
  Serious: Yes (Other)
  Sender: FDA-Public Use
  Company Number: None

PATIENT
  Age: 22 Year
  Sex: Female
  Weight: 54 kg

DRUGS (4)
  1. TERCONAZOLE [Suspect]
     Active Substance: TERCONAZOLE
     Indication: Fungal infection
     Dosage: OTHER QUANTITY : 20 INJECTION(S);?FREQUENCY : AT BEDTIME;?
     Route: 067
     Dates: start: 20221205, end: 20221206
  2. ZYRTEC [Concomitant]
     Active Substance: CETIRIZINE HYDROCHLORIDE
  3. VITAMINS [Concomitant]
     Active Substance: VITAMINS
  4. gummies [Concomitant]

REACTIONS (2)
  - Maternal exposure during pregnancy [None]
  - Vaginal haemorrhage [None]

NARRATIVE: CASE EVENT DATE: 20221206
